FAERS Safety Report 13386487 (Version 1)
Quarter: 2017Q1

REPORT INFORMATION
  Report Type: Spontaneous
  Country: GB (occurrence: GB)
  Receive Date: 20170330
  Receipt Date: 20170330
  Transmission Date: 20170429
  Serious: Yes (Other)
  Sender: FDA-Public Use
  Company Number: GB-FAC-000270

PATIENT
  Age: 75 Year
  Sex: Male

DRUGS (2)
  1. POVIDONE/IODINE [Concomitant]
     Route: 061
  2. CEFUROXIME. [Suspect]
     Active Substance: CEFUROXIME
     Dosage: 12.5 MG/0.1 ML
     Route: 031

REACTIONS (3)
  - Macular degeneration [Recovered/Resolved]
  - Medication error [Recovered/Resolved]
  - Off label use [Recovered/Resolved]
